FAERS Safety Report 8254423-3 (Version None)
Quarter: 2012Q2

REPORT INFORMATION
  Report Type: 
  Country: None (occurrence: None)
  Receive Date: 20120403
  Receipt Date: 20120319
  Transmission Date: 20120825
  Serious: Yes (Other)
  Sender: FDA-Public Use
  Company Number: BR-AMGEN-BRASP2012010976

PATIENT
  Age: 66 Year
  Sex: Female
  Weight: 97 kg

DRUGS (11)
  1. GLUCOSAMINE SULFATE [Concomitant]
     Dosage: 1.5 MG, 1X/DAY
  2. ACETAMINOPHEN [Concomitant]
     Dosage: 750 MG, 3X/DAY
  3. OMEPRAZOLE [Concomitant]
     Dosage: 20 MG, 1X/DAY
  4. PREDNISONE TAB [Concomitant]
     Dosage: 5 MG, 2X/DAY
  5. PHENYTOIN [Concomitant]
     Dosage: 100 MG, 3X/DAY
  6. FOLIC ACID [Concomitant]
     Dosage: 5 MG, WEEKLY
  7. NIMESULIDE [Concomitant]
     Dosage: 100 MG, 1X/DAY
  8. ENBREL [Suspect]
     Indication: RHEUMATOID ARTHRITIS
     Dosage: 50 MG, ONCE WEEKLY
     Route: 058
     Dates: start: 20100909
  9. CALCIUM CARBONATE [Concomitant]
     Dosage: 35 MG, WEEKLY
  10. METHOTREXATE [Concomitant]
     Dosage: 0.4 MG, WEEKLY
  11. SIMVASTATIN [Concomitant]
     Dosage: 40 MG, 1X/DAY

REACTIONS (11)
  - CEREBROVASCULAR ACCIDENT [None]
  - SOMNOLENCE [None]
  - WEIGHT DECREASED [None]
  - WHEELCHAIR USER [None]
  - ISCHAEMIC STROKE [None]
  - ARTHRITIS [None]
  - ARTHRALGIA [None]
  - INFLAMMATION [None]
  - FALL [None]
  - UPPER LIMB FRACTURE [None]
  - GAIT DISTURBANCE [None]
